FAERS Safety Report 22111141 (Version 1)
Quarter: 2023Q1

REPORT INFORMATION
  Report Type: Spontaneous
  Country: US (occurrence: US)
  Receive Date: 20230317
  Receipt Date: 20230317
  Transmission Date: 20230417
  Serious: No
  Sender: FDA-Public Use
  Company Number: US-BRISTOL-MYERS SQUIBB COMPANY-2023-039606

PATIENT
  Age: 65 Year
  Sex: Male
  Weight: 99.79 kg

DRUGS (1)
  1. REVLIMID [Suspect]
     Active Substance: LENALIDOMIDE
     Indication: Plasma cell myeloma
     Dosage: FREQUENCY: 21 DAYS ON, 7 OFF
     Route: 048

REACTIONS (6)
  - Hepatic enzyme abnormal [Unknown]
  - Dizziness [Unknown]
  - Dizziness [Unknown]
  - Hiccups [Unknown]
  - Pollakiuria [Unknown]
  - Fluid retention [Unknown]

NARRATIVE: CASE EVENT DATE: 20230311
